FAERS Safety Report 7217174-X (Version None)
Quarter: 2011Q1

REPORT INFORMATION
  Report Type: 
  Country: None (occurrence: None)
  Receive Date: 20110110
  Receipt Date: 20101109
  Transmission Date: 20110831
  Serious: Yes (Hospitalization, Other)
  Sender: FDA-Public Use
  Company Number: US-BAYER-201026513NA

PATIENT
  Sex: Female
  Weight: 110.91 kg

DRUGS (13)
  1. ASMANEX TWISTHALER [Concomitant]
     Route: 048
     Dates: start: 20080901
  2. LYRICA [Concomitant]
     Dosage: 300 MG (DAILY DOSE), BID, ORAL
     Route: 048
     Dates: start: 20080926
  3. YAZ [Suspect]
     Indication: CONTRACEPTION
     Route: 048
     Dates: start: 20080701, end: 20080801
  4. ORAL CONTRACEPTIVE NOS [Concomitant]
     Dates: start: 19950101, end: 20080601
  5. LYRICA [Concomitant]
     Indication: FIBROMYALGIA
     Dosage: 150 MG (DAILY DOSE), BID, ORAL
     Route: 048
     Dates: start: 20080919, end: 20080925
  6. NAPROXEN [Concomitant]
     Indication: HEADACHE
     Dosage: 1000 MG (DAILY DOSE), BID, ORAL
     Route: 048
     Dates: start: 20080101
  7. ADVIL [Concomitant]
     Indication: HEADACHE
     Dates: start: 20080101
  8. PROTRIPTYLINE [Concomitant]
     Indication: HEADACHE
     Dates: start: 20080818
  9. NADOL [Concomitant]
     Indication: HEADACHE
     Dates: start: 20080818
  10. DEPO-PROVERA [Concomitant]
     Dates: start: 20080601
  11. IUD NOS [Concomitant]
     Route: 015
     Dates: start: 20060101
  12. AMBIEN [Concomitant]
     Dosage: 10 MG (DAILY DOSE), HS, ORAL
     Route: 048
     Dates: start: 20080101
  13. LOVENOX [Concomitant]
     Indication: PULMONARY EMBOLISM
     Dates: start: 20080820

REACTIONS (11)
  - ASTHMA [None]
  - CHEST PAIN [None]
  - PLEURITIC PAIN [None]
  - DYSPNOEA [None]
  - BACK PAIN [None]
  - PULMONARY EMBOLISM [None]
  - CHEST DISCOMFORT [None]
  - HYPOAESTHESIA [None]
  - HEART RATE INCREASED [None]
  - MOBILITY DECREASED [None]
  - PULMONARY MYCOSIS [None]
